FAERS Safety Report 6253959-4 (Version None)
Quarter: 2009Q3

REPORT INFORMATION
  Report Type: 
  Country: None (occurrence: None)
  Receive Date: 20090702
  Receipt Date: 20090625
  Transmission Date: 20100115
  Serious: Yes (Hospitalization, Other)
  Sender: FDA-Public Use
  Company Number: US-JNJFOC-20090609672

PATIENT

DRUGS (15)
  1. FENTANYL TRANSDERMAL SYSTEM [Suspect]
     Route: 062
  2. FENTANYL TRANSDERMAL SYSTEM [Suspect]
     Indication: DRUG USE FOR UNKNOWN INDICATION
     Route: 062
  3. LASIX [Concomitant]
     Route: 065
  4. JANUVIA [Concomitant]
     Route: 065
  5. LIPITOR [Concomitant]
     Route: 065
  6. IRON [Concomitant]
     Route: 065
  7. COREG [Concomitant]
     Route: 065
  8. LEVEMIR [Concomitant]
     Dosage: 12 CC
     Route: 065
  9. OPANA [Concomitant]
     Route: 065
  10. LYRICA [Concomitant]
     Route: 065
  11. PRED FORTE [Concomitant]
     Route: 065
  12. BENICAR [Concomitant]
     Route: 065
  13. NEXIUM [Concomitant]
     Route: 065
  14. ANTIHISTAMINE [Concomitant]
  15. TRAMADOL [Concomitant]
     Route: 065

REACTIONS (3)
  - DEVICE LEAKAGE [None]
  - DRUG INEFFECTIVE [None]
  - UNRESPONSIVE TO STIMULI [None]
